FAERS Safety Report 5317550-6 (Version None)
Quarter: 2007Q2

REPORT INFORMATION
  Report Type: 
  Country: None (occurrence: None)
  Receive Date: 20070507
  Receipt Date: 20070424
  Transmission Date: 20071010
  Serious: Yes (Hospitalization)
  Sender: FDA-Public Use
  Company Number: PHHO2007JP07137

PATIENT
  Age: 84 Year
  Sex: Male

DRUGS (3)
  1. DIOVAN [Suspect]
     Indication: HYPERTENSION
     Dosage: 40 MG, QD
     Route: 048
     Dates: start: 20040109
  2. VASOLAN [Suspect]
     Dosage: 80 MG
     Route: 048
     Dates: start: 19991007
  3. ARTIST [Suspect]
     Dosage: 20 MG
     Route: 048
     Dates: start: 20011025

REACTIONS (1)
  - HEPATIC NEOPLASM MALIGNANT [None]
